FAERS Safety Report 14815609 (Version 1)
Quarter: 2018Q2

REPORT INFORMATION
  Report Type: Spontaneous
  Country: PR (occurrence: PR)
  Receive Date: 20180417
  Receipt Date: 20180417
  Transmission Date: 20180711
  Serious: No
  Sender: FDA-Public Use
  Company Number: None

PATIENT
  Age: 76 Year
  Sex: Female
  Weight: 72 kg

DRUGS (1)
  1. TEFLARO [Suspect]
     Active Substance: CEFTAROLINE FOSAMIL
     Indication: CELLULITIS
     Route: 042
     Dates: start: 20180405, end: 20180405

REACTIONS (1)
  - Pruritus [None]

NARRATIVE: CASE EVENT DATE: 20180405
